FAERS Safety Report 7215884-1 (Version None)
Quarter: 2011Q1

REPORT INFORMATION
  Report Type: 
  Country: None (occurrence: None)
  Receive Date: 20110107
  Receipt Date: 20101221
  Transmission Date: 20110831
  Serious: Yes (Death)
  Sender: FDA-Public Use
  Company Number: PHHO2010DE19879

PATIENT

DRUGS (1)
  1. ZOLEDRONATE [Suspect]
     Indication: METASTASES TO BONE
     Dosage: UNK

REACTIONS (1)
  - ACUTE MYOCARDIAL INFARCTION [None]
